FAERS Safety Report 6566502-7 (Version None)
Quarter: 2010Q1

REPORT INFORMATION
  Report Type: 
  Country: None (occurrence: None)
  Receive Date: 20100127
  Receipt Date: 20100111
  Transmission Date: 20100710
  Serious: Yes (Hospitalization, Other)
  Sender: FDA-Public Use
  Company Number: AVE_01424_2010

PATIENT
  Sex: Female
  Weight: 76.2043 kg

DRUGS (4)
  1. NICOTINE TRANSDERMAL SYSTEM (7 MG, 7 MG) [Suspect]
     Indication: SMOKING CESSATION THERAPY
     Dosage: 7 MG QD, 1 - 2 DAYS TRANSDERMAL), 7 MG QD TRANSDERMAL)
     Route: 062
     Dates: start: 20090804, end: 20090801
  2. NICOTINE TRANSDERMAL SYSTEM (7 MG, 7 MG) [Suspect]
     Indication: SMOKING CESSATION THERAPY
     Dosage: 7 MG QD, 1 - 2 DAYS TRANSDERMAL), 7 MG QD TRANSDERMAL)
     Route: 062
     Dates: start: 20090804
  3. ALEVE (CAPLET) [Concomitant]
  4. OXYGEN [Concomitant]

REACTIONS (2)
  - PULMONARY EMBOLISM [None]
  - THROMBOSIS [None]
